FAERS Safety Report 5023710-4 (Version None)
Quarter: 2006Q2

REPORT INFORMATION
  Report Type: 
  Country: None (occurrence: None)
  Receive Date: 20060612
  Receipt Date: 20060302
  Transmission Date: 20061013
  Serious: No
  Sender: FDA-Public Use
  Company Number: JP-AVENTIS-200610678JP

PATIENT
  Sex: Male

DRUGS (6)
  1. TAXOTERE [Suspect]
     Indication: LUNG ADENOCARCINOMA
     Route: 041
     Dates: start: 20060126, end: 20060220
  2. ANTINEOPLASTIC AND IMMUNOSUPPRESSIVE AGENTS [Concomitant]
     Route: 048
     Dates: start: 20060126, end: 20060131
  3. OXYCONTIN [Concomitant]
     Route: 048
     Dates: start: 20060126
  4. LOXONIN [Concomitant]
     Route: 048
     Dates: start: 20060126
  5. KYTRIL [Concomitant]
     Route: 041
     Dates: start: 20060126, end: 20060220
  6. DECADRON [Concomitant]
     Route: 041
     Dates: start: 20060126, end: 20060220

REACTIONS (2)
  - ERYTHEMA [None]
  - PSORIASIS [None]
